FAERS Safety Report 6224016-8 (Version None)
Quarter: 2009Q2

REPORT INFORMATION
  Report Type: 
  Country: None (occurrence: None)
  Receive Date: 20090612
  Receipt Date: 20090306
  Transmission Date: 20091009
  Serious: Yes (Other)
  Sender: FDA-Public Use
  Company Number: US-ABBOTT-09P-163-0561231-00

PATIENT
  Sex: Female
  Weight: 50.848 kg

DRUGS (3)
  1. HUMIRA [Suspect]
     Indication: CROHN'S DISEASE
     Route: 058
     Dates: start: 20080801, end: 20081201
  2. HUMIRA [Suspect]
     Route: 058
     Dates: start: 20090212
  3. FLONASE [Concomitant]
     Indication: SEASONAL ALLERGY

REACTIONS (1)
  - DRUG EFFECT DELAYED [None]
